FAERS Safety Report 20198083 (Version 1)
Quarter: 2021Q4

REPORT INFORMATION
  Report Type: Spontaneous
  Country: US (occurrence: US)
  Receive Date: 20211217
  Receipt Date: 20211217
  Transmission Date: 20220303
  Serious: No
  Sender: FDA-Public Use
  Company Number: US-ALLERGAN-2133615US

PATIENT
  Age: 69 Year
  Sex: Female

DRUGS (8)
  1. PREDNISOLONE ACETATE [Suspect]
     Active Substance: PREDNISOLONE ACETATE
     Indication: Cataract operation
     Dosage: UNK UNK, BID
     Dates: start: 202103, end: 20210330
  2. PREDNISOLONE ACETATE [Suspect]
     Active Substance: PREDNISOLONE ACETATE
     Dosage: UNK UNK, TID
     Dates: start: 20210228, end: 202103
  3. OFLOXACIN [Suspect]
     Active Substance: OFLOXACIN
     Indication: Cataract operation
     Dosage: UNK
     Dates: start: 20210226, end: 20210330
  4. BROMFENAC [Suspect]
     Active Substance: BROMFENAC SODIUM
     Indication: Cataract operation
     Dosage: UNK, OPHTHALMIC SOLUTION
     Dates: start: 20210226, end: 20210330
  5. VITAMINS [Concomitant]
     Active Substance: VITAMINS
  6. LEVOTHYROXINE [Concomitant]
     Active Substance: LEVOTHYROXINE
  7. SIMVASTATIN [Concomitant]
     Active Substance: SIMVASTATIN
  8. NAPROXEN [Concomitant]
     Active Substance: NAPROXEN
     Indication: Cataract operation

REACTIONS (11)
  - Musculoskeletal stiffness [Recovered/Resolved]
  - Periorbital swelling [Recovered/Resolved]
  - Skin wrinkling [Not Recovered/Not Resolved]
  - Dizziness [Recovered/Resolved]
  - Dry eye [Recovered/Resolved]
  - Eye pruritus [Recovered/Resolved]
  - Intraocular pressure increased [Recovered/Resolved]
  - Eye pain [Recovered/Resolved]
  - Eye irritation [Recovered/Resolved]
  - Foreign body sensation in eyes [Recovered/Resolved]
  - Hypersensitivity [Unknown]

NARRATIVE: CASE EVENT DATE: 20210301
